FAERS Safety Report 6269470-0 (Version None)
Quarter: 2009Q3

REPORT INFORMATION
  Report Type: 
  Country: None (occurrence: None)
  Receive Date: 20090715
  Receipt Date: 20081016
  Transmission Date: 20100115
  Serious: No
  Sender: FDA-Public Use
  Company Number: US-TYCO HEALTHCARE/MALLINCKRODT-T200801684

PATIENT

DRUGS (2)
  1. OXYCODONE HCL [Suspect]
     Indication: NECK PAIN
     Dosage: 60 MG, BID
     Route: 048
     Dates: start: 20070101
  2. OXYCODONE HCL [Suspect]
     Indication: FACIAL PAIN
     Dosage: 60 MG, TID
     Route: 048

REACTIONS (2)
  - EYE PAIN [None]
  - PHOTOSENSITIVITY REACTION [None]
